FAERS Safety Report 7110897-2 (Version None)
Quarter: 2010Q4

REPORT INFORMATION
  Report Type: 
  Country: None (occurrence: None)
  Receive Date: 20101118
  Receipt Date: 20101116
  Transmission Date: 20110411
  Serious: Yes (Death, Hospitalization)
  Sender: FDA-Public Use
  Company Number: GB-BRISTOL-MYERS SQUIBB COMPANY-14930127

PATIENT
  Age: 56 Year
  Sex: Male
  Weight: 58 kg

DRUGS (4)
  1. CISPLATIN [Suspect]
     Indication: NON-SMALL CELL LUNG CANCER STAGE III
     Route: 042
     Dates: start: 20091026
  2. ALIMTA [Suspect]
     Indication: NON-SMALL CELL LUNG CANCER STAGE III
     Route: 042
     Dates: start: 20091026
  3. RADIATION THERAPY [Suspect]
     Indication: NON-SMALL CELL LUNG CANCER STAGE III
     Dosage: 1DF=2GY
     Dates: start: 20091027
  4. FOLIC ACID [Concomitant]
     Dates: start: 20091005

REACTIONS (6)
  - DISEASE RECURRENCE [None]
  - EMBOLISM ARTERIAL [None]
  - HYPERCOAGULATION [None]
  - PHLEBITIS [None]
  - PNEUMONIA [None]
  - SEPSIS [None]
